FAERS Safety Report 5402957-9 (Version None)
Quarter: 2007Q3

REPORT INFORMATION
  Report Type: 
  Country: None (occurrence: None)
  Receive Date: 20070718
  Receipt Date: 20060918
  Transmission Date: 20080115
  Serious: Yes (Other)
  Sender: FDA-Public Use
  Company Number: 2006114969

PATIENT
  Sex: Male

DRUGS (2)
  1. CELEBREX [Suspect]
     Dates: start: 20020806, end: 20021202
  2. VIOXX [Suspect]
     Dates: start: 20020531, end: 20040930

REACTIONS (1)
  - CEREBROVASCULAR ACCIDENT [None]
